FAERS Safety Report 5372305-1 (Version None)
Quarter: 2007Q2

REPORT INFORMATION
  Report Type: 
  Country: None (occurrence: None)
  Receive Date: 20070620
  Receipt Date: 20070321
  Transmission Date: 20071010
  Serious: No
  Sender: FDA-Public Use
  Company Number: 2007RL000134

PATIENT
  Age: 70 Year
  Sex: Male
  Weight: 78.4723 kg

DRUGS (4)
  1. OMACOR [Suspect]
     Indication: PROPHYLAXIS
     Dosage: 1 GM;QAM;PO, 2 GM; HS; PO
     Route: 048
     Dates: start: 20060101
  2. OMACOR [Suspect]
     Indication: PROPHYLAXIS
     Dosage: 1 GM;QAM;PO, 2 GM; HS; PO
     Route: 048
     Dates: start: 20060101
  3. COZAAR [Concomitant]
  4. LIPITOR [Concomitant]

REACTIONS (2)
  - HEADACHE [None]
  - MUSCLE TWITCHING [None]
